FAERS Safety Report 8797867 (Version 1)
Quarter: 2012Q4

REPORT INFORMATION
  Report Type: 
  Country: US (occurrence: US)
  Receive Date: 20120919
  Receipt Date: 20120919
  Transmission Date: 20130627
  Serious: Yes (Other)
  Sender: FDA-Public Use
  Company Number: US-US-EMD SERONO, INC.-7160618

PATIENT
  Sex: Female
  Weight: 82 kg

DRUGS (2)
  1. REBIF [Suspect]
     Indication: PRODUCT USED FOR UNKNOWN INDICATION
     Route: 058
     Dates: start: 20090803
  2. MAGNESIUM SUPPLEMENT [Concomitant]
     Indication: ASTHENIA

REACTIONS (3)
  - Cardiomegaly [Unknown]
  - Hypertension [Unknown]
  - Asthenia [Unknown]
